FAERS Safety Report 18180360 (Version 1)
Quarter: 2020Q3

REPORT INFORMATION
  Report Type: Spontaneous
  Country: FR (occurrence: FR)
  Receive Date: 20200821
  Receipt Date: 20200821
  Transmission Date: 20201103
  Serious: Yes (Life-Threatening, Hospitalization)
  Sender: FDA-Public Use
  Company Number: FR-ROCHE-2663339

PATIENT
  Age: 72 Year
  Sex: Male

DRUGS (4)
  1. ZALTRAP [Suspect]
     Active Substance: ZIV-AFLIBERCEPT
     Indication: ADENOCARCINOMA
     Route: 042
     Dates: start: 20200428
  2. FLUOROURACILE ACCORD [Suspect]
     Active Substance: FLUOROURACIL
     Indication: ADENOCARCINOMA
     Route: 011
     Dates: start: 20190801
  3. IRINOTECAN [Suspect]
     Active Substance: IRINOTECAN
     Indication: ADENOCARCINOMA
     Route: 042
     Dates: start: 20200428, end: 20200527
  4. AVASTIN [Suspect]
     Active Substance: BEVACIZUMAB
     Indication: ADENOCARCINOMA
     Route: 042
     Dates: start: 20190801, end: 20200401

REACTIONS (1)
  - Cardiogenic shock [Recovering/Resolving]

NARRATIVE: CASE EVENT DATE: 20200622
